FAERS Safety Report 9405464 (Version 4)
Quarter: 2014Q1

REPORT INFORMATION
  Report Type: Spontaneous
  Country: US (occurrence: US)
  Receive Date: 20130717
  Receipt Date: 20140120
  Transmission Date: 20141002
  Serious: Yes (Hospitalization, Other)
  Sender: FDA-Public Use
  Company Number: US-009507513-1107USA01969

PATIENT
  Sex: Female

DRUGS (7)
  1. FOSAMAX [Suspect]
     Indication: OSTEOPENIA
     Dosage: 1 DF, QD
     Route: 048
     Dates: end: 2002
  2. FOSAMAX [Suspect]
     Indication: OSTEOPOROSIS
     Dosage: 70 MG, QD
     Route: 048
     Dates: start: 2002, end: 20100330
  3. ALENDRONATE SODIUM [Suspect]
     Indication: OSTEOPENIA
     Dosage: 70 MG, QD
     Route: 048
     Dates: start: 20100330, end: 20110708
  4. ALENDRONATE SODIUM [Suspect]
     Indication: OSTEOPOROSIS
  5. CALCIUM D3 [Concomitant]
     Dosage: 600 MG, QD
     Dates: start: 1988
  6. CENTRUM SILVER [Concomitant]
     Dosage: 1 DF, QD
     Dates: start: 1988
  7. ASCORBIC ACID [Concomitant]
     Dosage: 1000 MG, QD
     Dates: start: 1988

REACTIONS (13)
  - Intramedullary rod insertion [Unknown]
  - Intramedullary rod insertion [Unknown]
  - Femur fracture [Recovered/Resolved]
  - Femur fracture [Recovered/Resolved]
  - Endodontic procedure [Unknown]
  - Fracture [Unknown]
  - Hypercholesterolaemia [Unknown]
  - Osteoarthritis [Unknown]
  - Intervertebral disc degeneration [Unknown]
  - Osteoarthritis [Unknown]
  - Joint effusion [Unknown]
  - Osteoarthritis [Unknown]
  - Subcutaneous emphysema [Unknown]
